FAERS Safety Report 15760644 (Version 1)
Quarter: 2018Q4

REPORT INFORMATION
  Report Type: Spontaneous
  Country: US (occurrence: US)
  Receive Date: 20181226
  Receipt Date: 20181226
  Transmission Date: 20190205
  Serious: No
  Sender: FDA-Public Use
  Company Number: US-PFIZER INC-2018524965

PATIENT
  Age: 56 Year
  Sex: Female

DRUGS (1)
  1. SOMAVERT [Suspect]
     Active Substance: PEGVISOMANT
     Dosage: 30 MG, DAILY

REACTIONS (4)
  - Insulin-like growth factor increased [Unknown]
  - Vitamin D decreased [Unknown]
  - Product dose omission [Unknown]
  - Glycosylated haemoglobin increased [Unknown]
